FAERS Safety Report 4957614-X (Version None)
Quarter: 2006Q1

REPORT INFORMATION
  Report Type: 
  Country: None (occurrence: None)
  Receive Date: 20060324
  Receipt Date: 20060308
  Transmission Date: 20060701
  Serious: Yes (Other)
  Sender: FDA-Public Use
  Company Number: TRP_0725_2006

PATIENT
  Age: 53 Year
  Sex: Male
  Weight: 93.441 kg

DRUGS (4)
  1. RIBASPHERE [Suspect]
     Indication: HEPATITIS C
     Dosage: 600 MG BID PO
     Route: 048
     Dates: start: 20050508
  2. PEG-INTRON [Suspect]
     Indication: HEPATITIS C
     Dosage: DF QWK SC
     Route: 058
     Dates: start: 20050505
  3. MULTIVITAMIN [Concomitant]
  4. ZOLOFT [Concomitant]

REACTIONS (11)
  - DIZZINESS [None]
  - FALL [None]
  - FATIGUE [None]
  - LOSS OF CONSCIOUSNESS [None]
  - MASS [None]
  - MEMORY IMPAIRMENT [None]
  - ORTHOSTATIC HYPOTENSION [None]
  - PAIN IN JAW [None]
  - RETCHING [None]
  - TOOTH ABSCESS [None]
  - VERTIGO [None]
